FAERS Safety Report 4400828-8 (Version None)
Quarter: 2004Q3

REPORT INFORMATION
  Report Type: 
  Country: None (occurrence: None)
  Receive Date: 20040907
  Receipt Date: 20030619
  Transmission Date: 20050211
  Serious: No
  Sender: FDA-Public Use
  Company Number: US-BRISTOL-MYERS SQUIBB COMPANY-12310835

PATIENT
  Age: 66 Year
  Sex: Female
  Weight: 76 kg

DRUGS (3)
  1. COUMADIN [Suspect]
     Indication: AORTIC VALVE REPLACEMENT
     Dosage: 5-7 MG, DOSE VARIES WITH RESULTS OF INR.
     Route: 048
     Dates: start: 19961130
  2. PLAVIX [Suspect]
     Indication: STENT PLACEMENT
     Route: 048
     Dates: start: 20030331
  3. ASPIRIN [Concomitant]
     Dosage: DOSE REDUCED TO 81 MG/DAY
     Dates: start: 20030531

REACTIONS (1)
  - CONTUSION [None]
